FAERS Safety Report 6292908-X (Version None)
Quarter: 2009Q3

REPORT INFORMATION
  Report Type: 
  Country: None (occurrence: None)
  Receive Date: 20090729
  Receipt Date: 20090714
  Transmission Date: 20100115
  Serious: Yes (Disabling)
  Sender: FDA-Public Use
  Company Number: FI-1170328

PATIENT
  Age: 72 Year
  Sex: Male

DRUGS (1)
  1. AZARGA OPHTHALMIC SUSPENSION EYE DROPS, SUSPENSION [Suspect]
     Indication: GLAUCOMA
     Dosage: OPHTHALMIC
     Route: 047
     Dates: start: 20090429, end: 20090503

REACTIONS (4)
  - DEAFNESS [None]
  - HYPERAESTHESIA [None]
  - PAIN IN EXTREMITY [None]
  - PRODUCT SUBSTITUTION ISSUE [None]
